FAERS Safety Report 5235188-6 (Version None)
Quarter: 2007Q1

REPORT INFORMATION
  Report Type: 
  Country: None (occurrence: None)
  Receive Date: 20070208
  Receipt Date: 20070208
  Transmission Date: 20070707
  Serious: Yes (Death)
  Sender: FDA-Public Use
  Company Number: None

PATIENT
  Sex: Male
  Weight: 86.1834 kg

DRUGS (2)
  1. TAXOTERE [Suspect]
     Indication: NON-SMALL CELL LUNG CANCER
     Dosage: 20MG/M2 IV
     Route: 042
     Dates: start: 20040811, end: 20040908
  2. CARBOPLATIN [Suspect]
     Indication: NON-SMALL CELL LUNG CANCER
     Dosage: 252 MG
     Dates: start: 20040811, end: 20040908

REACTIONS (2)
  - FALL [None]
  - PULMONARY HAEMORRHAGE [None]
